FAERS Safety Report 9229064 (Version 3)
Quarter: 2013Q4

REPORT INFORMATION
  Report Type: Report from Study
  Country: BR (occurrence: BR)
  Receive Date: 20130412
  Receipt Date: 20131205
  Transmission Date: 20140711
  Serious: Yes (Hospitalization, Other)
  Sender: FDA-Public Use
  Company Number: BR-ELI_LILLY_AND_COMPANY-BR201304001039

PATIENT
  Age: 88 Year
  Sex: Female
  Weight: 67 kg

DRUGS (13)
  1. TERIPARATIDE [Suspect]
     Indication: OSTEOPOROSIS
     Dosage: 20 UG, QD
     Route: 058
     Dates: start: 201301
  2. TERIPARATIDE [Suspect]
     Dosage: 20 UG, QD
     Route: 058
  3. LOSARTAN [Concomitant]
     Indication: BLOOD PRESSURE
     Dosage: 150 MG, BID
     Route: 065
  4. LOSARTAN [Concomitant]
     Dosage: 25 MG, UNKNOWN
     Route: 065
  5. ATENOLOL [Concomitant]
     Dosage: 25 MG, QD
     Route: 065
  6. OXIBUTININA [Concomitant]
     Indication: URINARY RETENTION
     Dosage: 5 MG, BID
     Route: 065
  7. OMEPRAZOL [Concomitant]
     Indication: EPIGASTRIC DISCOMFORT
     Dosage: 20 MG, QD
     Route: 065
  8. SINVASTATINA [Concomitant]
     Indication: ARTERIOSCLEROSIS
     Dosage: 10 MG, QD
     Route: 065
  9. LORATADINA [Concomitant]
     Dosage: 10 MG, QD
     Route: 065
  10. SERTRALINA [Concomitant]
     Dosage: 50 MG, QD
     Route: 065
  11. ALENDRONATE SODIUM [Concomitant]
     Dosage: 70 MG, WEEKLY (1/W)
     Route: 065
  12. PARACETAMOL [Concomitant]
     Indication: PAIN
     Dosage: UNK, PRN
     Route: 065
  13. ASPIRINA [Concomitant]
     Indication: PAIN
     Dosage: UNK, PRN
     Route: 065

REACTIONS (15)
  - Blood pressure decreased [Not Recovered/Not Resolved]
  - Somnolence [Recovered/Resolved]
  - Dizziness [Recovering/Resolving]
  - Fall [Recovered/Resolved]
  - Pain [Recovering/Resolving]
  - Skeletal injury [Recovering/Resolving]
  - Eye injury [Recovering/Resolving]
  - Eye disorder [Recovering/Resolving]
  - Eyelid oedema [Recovering/Resolving]
  - Headache [Not Recovered/Not Resolved]
  - Diarrhoea [Recovering/Resolving]
  - Weight decreased [Recovering/Resolving]
  - Back pain [Recovering/Resolving]
  - Malaise [Recovered/Resolved]
  - Asthenia [Unknown]
